FAERS Safety Report 23954708 (Version 2)
Quarter: 2024Q3

REPORT INFORMATION
  Report Type: Spontaneous
  Country: US (occurrence: US)
  Receive Date: 20240610
  Receipt Date: 20240725
  Transmission Date: 20241016
  Serious: Yes (Disabling, Other)
  Sender: AMGEN
  Company Number: US-AMGEN-USASP2024109732

PATIENT
  Age: 75 Year
  Sex: Male
  Weight: 84 kg

DRUGS (46)
  1. TEPEZZA [Suspect]
     Active Substance: TEPROTUMUMAB-TRBW
     Indication: Endocrine ophthalmopathy
     Dosage: UNK
     Route: 042
     Dates: start: 202303
  2. TEPEZZA [Suspect]
     Active Substance: TEPROTUMUMAB-TRBW
     Indication: Graves^ disease
  3. ALBUTEROL SULFATE [Concomitant]
     Active Substance: ALBUTEROL SULFATE
     Indication: Cough
     Dosage: HFA 90/MCG ACTUATION AEROSOL INHALER (INHALE 1 TO 2 PUFFS BY MOUTH EVERY 4 TO 6 HOURS)
  4. AZELASTINE [Concomitant]
     Active Substance: AZELASTINE\AZELASTINE HYDROCHLORIDE
     Dosage: 0.05 PERCENT
  5. AZELASTINE [Concomitant]
     Active Substance: AZELASTINE\AZELASTINE HYDROCHLORIDE
     Dosage: UNK, BID (UNK (137 MICROGRAM NASAL SPRAY AEROSOL, 1 SPRAY IN EACH NOSTRIL)
  6. CREON [Concomitant]
     Active Substance: PANCRELIPASE AMYLASE\PANCRELIPASE LIPASE\PANCRELIPASE PROTEASE
     Dosage: ONE CAPSULE BY MOUTH 15 MINUTES PRIOR TO A MEAL
     Route: 048
  7. EPINEPHRINE [Concomitant]
     Active Substance: EPINEPHRINE
     Indication: Anaphylactic reaction
     Dosage: 0.3 MG/0.3 ML INJECTION
  8. VITAMIN D2 [Concomitant]
     Active Substance: ERGOCALCIFEROL
     Dosage: 1250 MICROGRAM, QWK (1,250 MCG (50,000 UNIT) CAPSULE)
     Route: 048
  9. FAMOTIDINE [Concomitant]
     Active Substance: FAMOTIDINE
     Dosage: 1 DOSAGE FORM, BID (40 MG TABLET)
     Route: 048
  10. FLUTICASONE PROPIONATE [Concomitant]
     Active Substance: FLUTICASONE PROPIONATE
     Dosage: UNK UNK, BID (50 MCG/ACTUATION NASAL SPRAY,SUSPENSION) (SHAKE LIQUID AND USE 1 SPRAY IN EACH NOSTRIL
     Route: 045
  11. GABAPENTIN [Concomitant]
     Active Substance: GABAPENTIN
     Dosage: 300 MILLIGRAM
     Route: 048
  12. HYDROCHLOROTHIAZIDE [Concomitant]
     Active Substance: HYDROCHLOROTHIAZIDE
     Dosage: 12.5 MILLIGRAM, QD
     Route: 048
  13. HYDROCODONE [Concomitant]
     Active Substance: HYDROCODONE
     Dosage: 1 DOSAGE FORM EVERY 6 HOURS (10 MG)
     Route: 048
  14. ACETAMINOPHEN [Concomitant]
     Active Substance: ACETAMINOPHEN
     Dosage: 1 DOSAGE FORM 1 DOSAGE FORM EVERY 6 HOURS (325 MG)
     Route: 048
  15. KETOROLAC [Concomitant]
     Active Substance: KETOROLAC TROMETHAMINE
     Indication: Eye pain
     Dosage: UNK UNK, BID (0.5 % EYE DROPS) (INSTILL ONE DROP INTO BOTH EYES TWICE DAILY)
  16. LANSOPRAZOLE [Concomitant]
     Active Substance: LANSOPRAZOLE
     Dosage: UNK UNK, QD (TAKE 1 TO 2 CAPSULES) (30 MG)
     Route: 048
  17. LEVOTHYROXINE [Concomitant]
     Active Substance: LEVOTHYROXINE\LEVOTHYROXINE SODIUM
     Dosage: 112 MICROGRAM, QD
     Route: 048
  18. LIOTHYRONINE [Concomitant]
     Active Substance: LIOTHYRONINE
     Dosage: 5 MICROGRAM, QD
     Route: 048
  19. LORATADINE [Concomitant]
     Active Substance: LORATADINE
     Dosage: 10 MILLIGRAM, QD
     Route: 048
  20. METOPROLOL TARTRATE [Concomitant]
     Active Substance: METOPROLOL TARTRATE
     Dosage: 50 MILLIGRAM (ONE TABLET EVERY 12 HOURS)
     Route: 048
  21. NALOXONE [Concomitant]
     Active Substance: NALOXONE
     Dosage: 4 MG/ACTUATION NASAL SPRAY
  22. OMEPRAZOLE [Concomitant]
     Active Substance: OMEPRAZOLE
     Dosage: 20 MILLIGRAM, QD
     Route: 048
  23. ONDANSETRON HYDROCHLORIDE [Concomitant]
     Active Substance: ONDANSETRON HYDROCHLORIDE
     Indication: Nausea
     Dosage: 4 MILLIGRAM (EVERY 8 HOURS)
     Route: 048
  24. OXYCODONE [Concomitant]
     Active Substance: OXYCODONE
     Dosage: UNK (5 MG)
  25. PANTOPRAZOLE [Concomitant]
     Active Substance: PANTOPRAZOLE
     Dosage: 40 MILLIGRAM, BID
     Route: 048
  26. PAROXETINE [Concomitant]
     Active Substance: PAROXETINE
     Dosage: 10 MILLIGRAM, BID
     Route: 048
  27. PROMETHAZINE [Concomitant]
     Active Substance: PROMETHAZINE HYDROCHLORIDE
     Dosage: 25 MILLIGRAM (EVERY 6 HOURS)
     Route: 048
  28. SILDENAFIL [Concomitant]
     Active Substance: SILDENAFIL
     Dosage: 100 MILLIGRAM, QD
     Route: 048
  29. SPIRONOLACTONE [Concomitant]
     Active Substance: SPIRONOLACTONE
     Dosage: UNK UNK, QD (1/2 TABLET) (25 MG)
     Route: 048
  30. SUCRALFATE [Concomitant]
     Active Substance: SUCRALFATE
     Dosage: 1 GRAM, QID
     Route: 048
  31. TRAZODONE [Concomitant]
     Active Substance: TRAZODONE HYDROCHLORIDE
     Dosage: 150 MILLIGRAM, QD
     Route: 048
  32. INFLUENZA VIRUS VACCINE [Concomitant]
     Active Substance: INFLUENZA VIRUS VACCINE
     Dosage: UNK
     Dates: start: 20150824
  33. COVID-19 vaccine [Concomitant]
     Dosage: UNK
     Dates: start: 20210119
  34. MAGNESIUM [Concomitant]
     Active Substance: MAGNESIUM
  35. VITAMIN C [Concomitant]
     Active Substance: ASCORBIC ACID
  36. CALCIUM [Concomitant]
     Active Substance: CALCIUM
  37. ZINC [Concomitant]
     Active Substance: ZINC
  38. PROTONIX [Concomitant]
     Active Substance: PANTOPRAZOLE SODIUM
  39. CARAFATE [Concomitant]
     Active Substance: SUCRALFATE
  40. ASPIRIN [Concomitant]
     Active Substance: ASPIRIN
  41. POTASSIUM [Concomitant]
     Active Substance: POTASSIUM
  42. VITAMIN D [Concomitant]
     Active Substance: VITAMIN D NOS
  43. IRON [Concomitant]
     Active Substance: IRON
  44. FLUTICASONE [Concomitant]
     Active Substance: FLUTICASONE
  45. METOCLOPRAMIDE [Concomitant]
     Active Substance: METOCLOPRAMIDE
  46. PAXIL [Concomitant]
     Active Substance: PAROXETINE HYDROCHLORIDE

REACTIONS (41)
  - Deafness permanent [Not Recovered/Not Resolved]
  - Physical disability [Unknown]
  - Endocrine ophthalmopathy [Unknown]
  - Graves^ disease [Unknown]
  - Thrombocytopenia [Unknown]
  - Hypokalaemia [Recovered/Resolved]
  - Pancreatitis chronic [Recovering/Resolving]
  - Polyneuropathy [Unknown]
  - Injury [Unknown]
  - Emotional distress [Unknown]
  - Pain [Unknown]
  - Anxiety [Unknown]
  - Impaired quality of life [Unknown]
  - Discomfort [Unknown]
  - Physical product label issue [Unknown]
  - Tinnitus [Not Recovered/Not Resolved]
  - Spinal osteoarthritis [Unknown]
  - Intervertebral disc degeneration [Unknown]
  - Gastrooesophageal reflux disease [Unknown]
  - Hernia repair [Unknown]
  - Overgrowth syndrome [Unknown]
  - Hernia [Unknown]
  - Iron deficiency anaemia [Unknown]
  - Gastritis [Unknown]
  - Glucose tolerance impaired [Unknown]
  - Palpitations [Unknown]
  - Blood glucose increased [Unknown]
  - Blood thyroid stimulating hormone increased [Unknown]
  - Haemoglobin decreased [Unknown]
  - Haematocrit decreased [Unknown]
  - Platelet count decreased [Unknown]
  - Mean platelet volume increased [Unknown]
  - Mean platelet volume increased [Unknown]
  - Blood alkaline phosphatase decreased [Unknown]
  - Lipase increased [Unknown]
  - Red blood cell count decreased [Unknown]
  - Haematocrit decreased [Unknown]
  - Oxygen saturation decreased [Unknown]
  - Mean cell haemoglobin concentration decreased [Unknown]
  - Blood thyroid stimulating hormone increased [Unknown]
  - Tri-iodothyronine decreased [Unknown]

NARRATIVE: CASE EVENT DATE: 20230811
